FAERS Safety Report 6468830-2 (Version None)
Quarter: 2009Q4

REPORT INFORMATION
  Report Type: 
  Country: None (occurrence: None)
  Receive Date: 20091203
  Receipt Date: 20080303
  Transmission Date: 20100525
  Serious: Yes (Hospitalization, Other)
  Sender: FDA-Public Use
  Company Number: US-ELI_LILLY_AND_COMPANY-USA0506100218

PATIENT
  Sex: Male
  Weight: 131.52 kg

DRUGS (14)
  1. ZYPREXA [Suspect]
     Indication: ROAD TRAFFIC ACCIDENT
     Dosage: 10 MG, 2/D
     Dates: start: 20010101
  2. K-DUR [Concomitant]
     Indication: MINERAL SUPPLEMENTATION
     Dosage: 20 MEQ, DAILY (1/D)
  3. ATENOLOL [Concomitant]
     Dosage: 25 MG, DAILY (1/D)
  4. MULTI-VITAMINS [Concomitant]
  5. AXID [Concomitant]
     Dosage: 150 MG, 2/D
  6. LASIX [Concomitant]
     Dosage: 40 MG, 2/D
  7. COUMADIN [Concomitant]
     Dosage: 6 MG, UNK
  8. KLONOPIN [Concomitant]
     Dosage: 1 MG, 3/D
  9. VICODIN [Concomitant]
     Dosage: UNK, AS NEEDED
  10. PAXIL [Concomitant]
     Dosage: 10 MG, DAILY (1/D)
  11. ALDACTONE [Concomitant]
  12. ALLEGRA [Concomitant]
  13. IMDUR [Concomitant]
  14. INDERAL [Concomitant]

REACTIONS (16)
  - AMNESIA [None]
  - CARDIOMEGALY [None]
  - CHOLELITHIASIS [None]
  - DIARRHOEA [None]
  - DYSPHAGIA [None]
  - FEELING ABNORMAL [None]
  - GASTROINTESTINAL HAEMORRHAGE [None]
  - HEPATIC ENCEPHALOPATHY [None]
  - INCREASED APPETITE [None]
  - JOINT INJURY [None]
  - LIVER FUNCTION TEST ABNORMAL [None]
  - OESOPHAGEAL VARICES HAEMORRHAGE [None]
  - SOMNOLENCE [None]
  - TYPE 2 DIABETES MELLITUS [None]
  - URINE ABNORMALITY [None]
  - WEIGHT INCREASED [None]
